FAERS Safety Report 13773176 (Version 9)
Quarter: 2017Q4

REPORT INFORMATION
  Report Type: Spontaneous
  Country: JP (occurrence: JP)
  Receive Date: 20170720
  Receipt Date: 20171012
  Transmission Date: 20180320
  Serious: Yes (Hospitalization, Other)
  Sender: FDA-Public Use
  Company Number: JP-009507513-1707JPN000347J

PATIENT
  Age: 74 Year
  Sex: Female
  Weight: 36 kg

DRUGS (10)
  1. PREDONINE [Suspect]
     Active Substance: PREDNISOLONE
     Dosage: 60 MG, QD
     Route: 051
     Dates: start: 20170719, end: 20170723
  2. PREDONINE [Suspect]
     Active Substance: PREDNISOLONE
     Dosage: 60.0 MG, QD
     Route: 051
     Dates: start: 20170729, end: 20170809
  3. KEYTRUDA [Suspect]
     Active Substance: PEMBROLIZUMAB
     Indication: LUNG ADENOCARCINOMA
     Dosage: 200 MG, Q3W
     Route: 041
     Dates: start: 20170427, end: 20170821
  4. BAKTAR [Concomitant]
     Active Substance: SULFAMETHOXAZOLE\TRIMETHOPRIM
     Indication: PROPHYLAXIS
     Dosage: 1 DF, QD
     Route: 048
     Dates: start: 20170706
  5. PREDONINE [Suspect]
     Active Substance: PREDNISOLONE
     Dosage: 80 MG, QD
     Route: 051
     Dates: start: 20170706, end: 20170718
  6. PREDONINE [Suspect]
     Active Substance: PREDNISOLONE
     Dosage: 50 MG, QD
     Route: 051
     Dates: start: 20170724, end: 20170728
  7. PREDONINE [Suspect]
     Active Substance: PREDNISOLONE
     Indication: CHOLANGITIS SCLEROSING
     Dosage: 40 MG, QD
     Route: 051
     Dates: start: 20170628, end: 20170705
  8. CEFZON [Concomitant]
     Active Substance: CEFDINIR
     Indication: INFECTED DERMAL CYST
     Dosage: 100 MG, TID
     Route: 048
     Dates: start: 20170628, end: 20170711
  9. PREDONINE [Suspect]
     Active Substance: PREDNISOLONE
     Dosage: 80 MG, QD
     Route: 051
     Dates: start: 20170810
  10. BONALON [Concomitant]
     Active Substance: ALENDRONATE SODIUM
     Indication: PROPHYLAXIS
     Dosage: 35 MG, QW
     Route: 048
     Dates: start: 20170707

REACTIONS (5)
  - Infected dermal cyst [Recovering/Resolving]
  - Bacteraemia [Recovering/Resolving]
  - Cholangitis sclerosing [Recovering/Resolving]
  - Diplegia [Not Recovered/Not Resolved]
  - Spinal compression fracture [Not Recovered/Not Resolved]

NARRATIVE: CASE EVENT DATE: 20170628
